FAERS Safety Report 13573578 (Version 1)
Quarter: 2017Q2

REPORT INFORMATION
  Report Type: Spontaneous
  Country: US (occurrence: US)
  Receive Date: 20170523
  Receipt Date: 20170523
  Transmission Date: 20170830
  Serious: No
  Sender: FDA-Public Use
  Company Number: US-DRREDDYS-USA/USA/17/0086507

PATIENT
  Age: 14 Year
  Sex: Male

DRUGS (4)
  1. ZENATANE [Suspect]
     Active Substance: ISOTRETINOIN
     Route: 065
     Dates: end: 20160712
  2. ZENATANE [Suspect]
     Active Substance: ISOTRETINOIN
     Route: 065
     Dates: start: 20161010, end: 20161123
  3. ZENATANE [Suspect]
     Active Substance: ISOTRETINOIN
     Indication: ACNE
     Route: 065
     Dates: start: 20160609
  4. ZENATANE [Suspect]
     Active Substance: ISOTRETINOIN
     Route: 065
     Dates: start: 20160726

REACTIONS (7)
  - Dry skin [Unknown]
  - Lip dry [Unknown]
  - Aspartate aminotransferase decreased [Unknown]
  - Arthralgia [Unknown]
  - Epistaxis [Unknown]
  - Muscular weakness [Unknown]
  - Protein total increased [Unknown]

NARRATIVE: CASE EVENT DATE: 201607
